FAERS Safety Report 18411340 (Version 3)
Quarter: 2021Q3

REPORT INFORMATION
  Report Type: Report from Study
  Country: DE (occurrence: DE)
  Receive Date: 20201021
  Receipt Date: 20210830
  Transmission Date: 20211014
  Serious: Yes (Hospitalization, Other)
  Sender: FDA-Public Use
  Company Number: DE-BRISTOL-MYERS SQUIBB COMPANY-BMS-2020-072457

PATIENT
  Age: 53 Year
  Sex: Male

DRUGS (4)
  1. LANTUS [Concomitant]
     Active Substance: INSULIN GLARGINE
     Indication: METABOLIC DISORDER
     Dosage: 0?0?0?16 IU
     Route: 065
     Dates: start: 20200731
  2. ACTRAPID [Concomitant]
     Active Substance: INSULIN HUMAN
     Indication: METABOLIC DISORDER
     Dosage: 20?8?8 IU
     Route: 065
     Dates: start: 20200731
  3. NIVOLUMAB [Suspect]
     Active Substance: NIVOLUMAB
     Indication: RENAL CELL CARCINOMA
     Dosage: 3 MILLIGRAM/KILOGRAM, Q3WK
     Route: 042
     Dates: start: 20200608
  4. IPILIMUMAB [Suspect]
     Active Substance: IPILIMUMAB
     Indication: RENAL CELL CARCINOMA
     Dosage: 1 MILLIGRAM/KILOGRAM, Q3WK
     Route: 042
     Dates: start: 20200608

REACTIONS (5)
  - Hemiparesis [Not Recovered/Not Resolved]
  - Hypophysitis [Recovering/Resolving]
  - Immune-mediated encephalitis [Recovered/Resolved with Sequelae]
  - Diabetes mellitus [Recovering/Resolving]
  - Organic brain syndrome [Not Recovered/Not Resolved]

NARRATIVE: CASE EVENT DATE: 20200731
